FAERS Safety Report 5926978-2 (Version None)
Quarter: 2008Q4

REPORT INFORMATION
  Report Type: 
  Country: None (occurrence: None)
  Receive Date: 20081021
  Receipt Date: 20081021
  Transmission Date: 20090506
  Serious: No
  Sender: FDA-Public Use
  Company Number: None

PATIENT

DRUGS (1)
  1. ASPIRIN [Suspect]
     Dates: start: 20081014

REACTIONS (4)
  - DYSSTASIA [None]
  - MENIERE'S DISEASE [None]
  - PRODUCT QUALITY ISSUE [None]
  - VOMITING [None]
